FAERS Safety Report 23477120 (Version 1)
Quarter: 2024Q1

REPORT INFORMATION
  Report Type: Report from Study
  Country: US (occurrence: US)
  Receive Date: 20240204
  Receipt Date: 20240204
  Transmission Date: 20240410
  Serious: No
  Sender: FDA-Public Use
  Company Number: US-EXELIXIS-CABO-23065453

PATIENT
  Sex: Female
  Weight: 55.51 kg

DRUGS (3)
  1. CABOMETYX [Suspect]
     Active Substance: CABOZANTINIB S-MALATE
     Indication: Retroperitoneal cancer
     Dosage: 20 MG, QD
     Route: 048
  2. SPRYCEL [Concomitant]
     Active Substance: DASATINIB
  3. TYLENOL [Concomitant]
     Active Substance: ACETAMINOPHEN

REACTIONS (1)
  - Off label use [Unknown]
